FAERS Safety Report 7251344-X (Version None)
Quarter: 2011Q1

REPORT INFORMATION
  Report Type: 
  Country: None (occurrence: None)
  Receive Date: 20110128
  Receipt Date: 20110120
  Transmission Date: 20110831
  Serious: Yes (Other)
  Sender: FDA-Public Use
  Company Number: CA-ROCHE-754469

PATIENT
  Age: 63 Year
  Sex: Male

DRUGS (1)
  1. AVASTIN [Suspect]
     Dosage: FORM: SOLUTION INTRAVENOUS
     Route: 031

REACTIONS (3)
  - VISION BLURRED [None]
  - EYE PAIN [None]
  - INTRAOCULAR PRESSURE INCREASED [None]
